FAERS Safety Report 8332481-5 (Version None)
Quarter: 2012Q2

REPORT INFORMATION
  Report Type: 
  Country: None (occurrence: None)
  Receive Date: 20120503
  Receipt Date: 20120427
  Transmission Date: 20120825
  Serious: No
  Sender: FDA-Public Use
  Company Number: US-PFIZER INC-2012060197

PATIENT
  Sex: Female

DRUGS (2)
  1. ESTRING [Suspect]
     Indication: OESTROGEN REPLACEMENT THERAPY
     Dosage: 2 MG, UNK
     Route: 067
  2. LEVOTHYROXINE [Concomitant]
     Dosage: UNK

REACTIONS (2)
  - DISCOMFORT [None]
  - RESTLESSNESS [None]
